FAERS Safety Report 21622727 (Version 1)
Quarter: 2022Q4

REPORT INFORMATION
  Report Type: Spontaneous
  Country: DE (occurrence: DE)
  Receive Date: 20221121
  Receipt Date: 20221121
  Transmission Date: 20230112
  Serious: Yes (Other)
  Sender: FDA-Public Use
  Company Number: DE-ELI_LILLY_AND_COMPANY-DE202211004534

PATIENT
  Age: 21 Year
  Sex: Male

DRUGS (1)
  1. OLUMIANT [Suspect]
     Active Substance: BARICITINIB
     Indication: Alopecia totalis
     Dosage: UNK UNK, UNKNOWN
     Route: 065

REACTIONS (2)
  - Angina pectoris [Unknown]
  - Off label use [Unknown]
